FAERS Safety Report 24762319 (Version 1)
Quarter: 2024Q4

REPORT INFORMATION
  Report Type: Spontaneous
  Country: US (occurrence: US)
  Receive Date: 20241221
  Receipt Date: 20241221
  Transmission Date: 20250114
  Serious: No
  Sender: ABBVIE
  Company Number: US-ABBVIE-6055791

PATIENT
  Age: 16 Year
  Sex: Male
  Weight: 61.689 kg

DRUGS (1)
  1. CREON [Suspect]
     Active Substance: PANCRELIPASE AMYLASE\PANCRELIPASE LIPASE\PANCRELIPASE PROTEASE
     Indication: Pancreatic failure
     Dosage: 6 CAPS PER MEAL AND 3 CAPS PER SNACK
     Route: 048

REACTIONS (2)
  - Diarrhoea [Unknown]
  - Steatorrhoea [Unknown]

NARRATIVE: CASE EVENT DATE: 20241101
